FAERS Safety Report 17532082 (Version 5)
Quarter: 2020Q2

REPORT INFORMATION
  Report Type: Report from Study
  Country: AU (occurrence: AU)
  Receive Date: 20200311
  Receipt Date: 20200417
  Transmission Date: 20200713
  Serious: Yes (Other)
  Sender: FDA-Public Use
  Company Number: AU-BRISTOL-MYERS SQUIBB COMPANY-BMS-2020-019563

PATIENT
  Age: 6 Year
  Sex: Female
  Weight: 26.6 kg

DRUGS (3)
  1. WARFARIN [Concomitant]
     Active Substance: WARFARIN
     Indication: PRODUCT USED FOR UNKNOWN INDICATION
     Dosage: 3.2 MILLIGRAM
     Route: 065
     Dates: start: 20190319
  2. VITAMIN D [COLECALCIFEROL] [Concomitant]
     Active Substance: CHOLECALCIFEROL
     Indication: PRODUCT USED FOR UNKNOWN INDICATION
     Dosage: UNK
     Route: 065
     Dates: start: 20180815
  3. APIXABAN [Suspect]
     Active Substance: APIXABAN
     Indication: EBSTEIN^S ANOMALY
     Dosage: 6 MILLIGRAM
     Route: 048
     Dates: start: 20200107, end: 20200305

REACTIONS (1)
  - Shunt thrombosis [Unknown]

NARRATIVE: CASE EVENT DATE: 20200304
